FAERS Safety Report 10692762 (Version 3)
Quarter: 2015Q1

REPORT INFORMATION
  Report Type: Spontaneous
  Country: IL (occurrence: IL)
  Receive Date: 20150106
  Receipt Date: 20150128
  Transmission Date: 20150720
  Serious: Yes (Hospitalization)
  Sender: FDA-Public Use
  Company Number: IL-TEVA-530576ISR

PATIENT
  Age: 60 Year
  Sex: Male

DRUGS (1)
  1. ACTOS [Suspect]
     Active Substance: PIOGLITAZONE HYDROCHLORIDE
     Indication: DIABETES MELLITUS
     Route: 048

REACTIONS (3)
  - Oedema peripheral [Recovered/Resolved]
  - Pulmonary oedema [Recovered/Resolved]
  - Ascites [Recovered/Resolved]
